FAERS Safety Report 6073124-3 (Version None)
Quarter: 2009Q1

REPORT INFORMATION
  Report Type: 
  Country: None (occurrence: None)
  Receive Date: 20090211
  Receipt Date: 20090130
  Transmission Date: 20090719
  Serious: Yes (Other)
  Sender: FDA-Public Use
  Company Number: CA-JNJFOC-20090200442

PATIENT
  Sex: Male
  Weight: 88.6 kg

DRUGS (3)
  1. REMICADE [Suspect]
     Dosage: INFUSION #13
     Route: 042
  2. REMICADE [Suspect]
     Indication: ANKYLOSING SPONDYLITIS
     Dosage: 11 INFUSIONS, DATES UNSPECIFIED
     Route: 042
  3. REMICADE [Suspect]
     Indication: COLITIS ULCERATIVE
     Dosage: 13 INFUSIONS, DATES UNSPECIFIED
     Route: 042

REACTIONS (3)
  - DIZZINESS [None]
  - INFUSION RELATED REACTION [None]
  - VISION BLURRED [None]
